FAERS Safety Report 23357592 (Version 9)
Quarter: 2024Q4

REPORT INFORMATION
  Report Type: Spontaneous
  Country: IN (occurrence: IN)
  Receive Date: 20240102
  Receipt Date: 20241126
  Transmission Date: 20250114
  Serious: Yes (Other)
  Sender: PFIZER
  Company Number: IN-PFIZER INC-PV202400000019

PATIENT
  Age: 61 Year
  Sex: Male

DRUGS (3)
  1. CRIZOTINIB [Suspect]
     Active Substance: CRIZOTINIB
     Indication: Lung adenocarcinoma stage IV
     Dosage: 250 MG, 2X/DAY
     Route: 048
     Dates: start: 20230519
  2. CRIZOTINIB [Suspect]
     Active Substance: CRIZOTINIB
     Dosage: 250 MG, 2X/DAY
     Route: 048
     Dates: start: 202307, end: 202308
  3. CRIZOTINIB [Suspect]
     Active Substance: CRIZOTINIB
     Dosage: 200 MG, 2X/DAY
     Route: 048

REACTIONS (12)
  - Tuberculosis [Unknown]
  - Pleural effusion [Unknown]
  - Heart rate increased [Recovered/Resolved]
  - Blood pressure increased [Unknown]
  - Decreased appetite [Unknown]
  - Blood pressure decreased [Recovering/Resolving]
  - Oxygen saturation decreased [Recovered/Resolved]
  - Haemoptysis [Unknown]
  - Dyspnoea exertional [Unknown]
  - Blood albumin decreased [Unknown]
  - Peripheral swelling [Unknown]
  - Heart rate decreased [Recovered/Resolved]

NARRATIVE: CASE EVENT DATE: 20240119
